FAERS Safety Report 7936132-0 (Version None)
Quarter: 2011Q4

REPORT INFORMATION
  Report Type: 
  Country: None (occurrence: None)
  Receive Date: 20111123
  Receipt Date: 20111117
  Transmission Date: 20120403
  Serious: Yes (Hospitalization)
  Sender: FDA-Public Use
  Company Number: JP-B.I. PHARMACEUTICALS,INC./RIDGEFIELD-2011-BP-22524NB

PATIENT
  Sex: Female
  Weight: 55 kg

DRUGS (4)
  1. CRESTOR [Concomitant]
     Indication: HYPERLIPIDAEMIA
     Dosage: 2.5 MG
     Route: 048
     Dates: start: 20090101, end: 20110531
  2. MOBIC [Suspect]
     Indication: BACK PAIN
     Dosage: 10 MG
     Route: 048
     Dates: start: 20110401, end: 20110531
  3. CANDESARTAN CILEXETIL [Concomitant]
     Indication: HYPERTENSION
     Dosage: 4 MG
     Route: 048
     Dates: start: 20090101, end: 20110531
  4. AMLODIPINE [Suspect]
     Indication: HYPERTENSION
     Dosage: 5 MG
     Route: 048
     Dates: start: 20110401, end: 20110531

REACTIONS (6)
  - PNEUMONITIS [None]
  - ASPARTATE AMINOTRANSFERASE INCREASED [None]
  - ALANINE AMINOTRANSFERASE INCREASED [None]
  - DYSPNOEA EXERTIONAL [None]
  - BLOOD GLUCOSE INCREASED [None]
  - BLOOD ALKALINE PHOSPHATASE INCREASED [None]
